FAERS Safety Report 13644679 (Version 1)
Quarter: 2017Q2

REPORT INFORMATION
  Report Type: Spontaneous
  Country: US (occurrence: US)
  Receive Date: 20170612
  Receipt Date: 20170612
  Transmission Date: 20170830
  Serious: No
  Sender: FDA-Public Use
  Company Number: US-ROCHE-1315606

PATIENT
  Sex: Male

DRUGS (1)
  1. XELODA [Suspect]
     Active Substance: CAPECITABINE
     Indication: LYMPHOMA
     Dosage: FIRST SHIPPED 13-MAY-2013
     Route: 048

REACTIONS (4)
  - Peripheral swelling [Unknown]
  - Skin exfoliation [Unknown]
  - Rash [Unknown]
  - Skin fissures [Unknown]
